FAERS Safety Report 9348406 (Version 1)
Quarter: 2013Q2

REPORT INFORMATION
  Report Type: Spontaneous
  Country: US (occurrence: None)
  Receive Date: 20130613
  Receipt Date: 20130613
  Transmission Date: 20140414
  Serious: No
  Sender: FDA-Public Use
  Company Number: None

PATIENT
  Sex: Female
  Weight: 101.15 kg

DRUGS (1)
  1. PREDNISONE [Suspect]
     Indication: ANAPHYLACTIC REACTION
     Dosage: TAPER
     Route: 048
     Dates: start: 20130223, end: 20130316

REACTIONS (2)
  - Myalgia [None]
  - Back pain [None]
